FAERS Safety Report 25582782 (Version 1)
Quarter: 2025Q3

REPORT INFORMATION
  Report Type: Spontaneous
  Country: US (occurrence: US)
  Receive Date: 20250720
  Receipt Date: 20250720
  Transmission Date: 20251020
  Serious: No
  Sender: ABBVIE
  Company Number: US-ABBVIE-6369073

PATIENT
  Sex: Female
  Weight: 72.5 kg

DRUGS (1)
  1. UBRELVY [Suspect]
     Active Substance: UBROGEPANT
     Indication: Migraine
     Route: 048
     Dates: end: 20250615

REACTIONS (2)
  - Mental impairment [Not Recovered/Not Resolved]
  - Migraine [Not Recovered/Not Resolved]
